FAERS Safety Report 7324700-9 (Version None)
Quarter: 2011Q1

REPORT INFORMATION
  Report Type: 
  Country: None (occurrence: None)
  Receive Date: 20110301
  Receipt Date: 20110223
  Transmission Date: 20110831
  Serious: Yes (Other)
  Sender: FDA-Public Use
  Company Number: BR-ABBOTT-10P-020-0679658-00

PATIENT
  Sex: Female
  Weight: 59 kg

DRUGS (7)
  1. CIPROFLOXACIN [Concomitant]
     Indication: FISTULA
     Route: 048
     Dates: start: 20100401
  2. MAGISTRAL FORMULA [Concomitant]
     Indication: MINERAL SUPPLEMENTATION
     Route: 048
  3. HUMIRA [Suspect]
     Indication: CROHN'S DISEASE
     Dosage: 160 MG/80 MG, 7 DAYS
     Route: 058
     Dates: start: 20100527, end: 20100701
  4. HUMIRA [Suspect]
     Dates: start: 20100901
  5. AZATHIOPRINE SODIUM [Concomitant]
     Indication: CROHN'S DISEASE
     Route: 048
     Dates: start: 20010101
  6. PANTOPRAZOLE [Concomitant]
     Indication: GASTRIC DISORDER
     Route: 048
     Dates: start: 20090101
  7. RABEPRAZOLE SODIUM [Concomitant]
     Indication: GASTRITIS
     Route: 048
     Dates: start: 20101201

REACTIONS (10)
  - ALOPECIA [None]
  - INJECTION SITE ERYTHEMA [None]
  - MADAROSIS [None]
  - INJECTION SITE INDURATION [None]
  - ERYTHEMA [None]
  - URINARY TRACT INFECTION [None]
  - APPLICATION SITE SWELLING [None]
  - WEIGHT DECREASED [None]
  - INJECTION SITE NODULE [None]
  - MEDICAL DEVICE COMPLICATION [None]
